FAERS Safety Report 21154365 (Version 2)
Quarter: 2022Q3

REPORT INFORMATION
  Report Type: Report from Study
  Country: FR (occurrence: None)
  Receive Date: 20220801
  Receipt Date: 20220830
  Transmission Date: 20221027
  Serious: Yes (Hospitalization)
  Sender: FDA-Public Use
  Company Number: FR-ROCHE-3147280

PATIENT
  Age: 69 Year
  Sex: Male

DRUGS (5)
  1. ATEZOLIZUMAB [Suspect]
     Active Substance: ATEZOLIZUMAB
     Indication: Bladder cancer
     Dosage: DATE OF LAST DOSE OF ADMINISTERED BEFORE AE 20/APR/2022
     Route: 041
     Dates: start: 20211116
  2. BCG VACCINE [Suspect]
     Active Substance: BCG VACCINE
     Indication: Bladder cancer
     Dosage: DATE OF LAST DOSE ADMINISTERED BEFORE AE 25/MAY/2022
     Route: 023
     Dates: start: 20211122
  3. XARELTO [Concomitant]
     Active Substance: RIVAROXABAN
  4. ACETAMINOPHEN [Concomitant]
     Active Substance: ACETAMINOPHEN
     Route: 048
  5. PHLOROGLUCINOL [Concomitant]
     Active Substance: PHLOROGLUCINOL

REACTIONS (1)
  - Haematuria [Recovered/Resolved]

NARRATIVE: CASE EVENT DATE: 20220530
